FAERS Safety Report 6586892-9 (Version None)
Quarter: 2010Q1

REPORT INFORMATION
  Report Type: 
  Country: None (occurrence: None)
  Receive Date: 20100217
  Receipt Date: 20091007
  Transmission Date: 20100710
  Serious: Yes (Other)
  Sender: FDA-Public Use
  Company Number: US-ALLERGAN-0910712US

PATIENT
  Age: 58 Year
  Sex: Female

DRUGS (4)
  1. BOTOX COSMETIC [Suspect]
     Indication: SKIN WRINKLING
     Dosage: 30 UNITS, SINGLE
     Route: 030
     Dates: start: 20090721, end: 20090721
  2. BOTOX COSMETIC [Suspect]
     Dosage: UNK
     Dates: start: 20061019, end: 20061019
  3. BOTOX COSMETIC [Suspect]
     Dosage: UNK
     Dates: start: 20061026, end: 20061026
  4. BOTOX COSMETIC [Suspect]
     Dosage: UNK
     Dates: start: 20080227, end: 20080227

REACTIONS (2)
  - GUILLAIN-BARRE SYNDROME [None]
  - MUSCULAR WEAKNESS [None]
